FAERS Safety Report 14366997 (Version 4)
Quarter: 2018Q1

REPORT INFORMATION
  Report Type: Spontaneous
  Country: US (occurrence: US)
  Receive Date: 20180109
  Receipt Date: 20180302
  Transmission Date: 20180509
  Serious: Yes (Hospitalization)
  Sender: FDA-Public Use
  Company Number: US-GLAXOSMITHKLINE-US2018001481

PATIENT
  Age: 49 Year
  Sex: Female

DRUGS (5)
  1. SUMATRIPTAN (SUMATRIPTAN SUCCINATE) [Suspect]
     Active Substance: SUMATRIPTAN SUCCINATE
     Indication: MIGRAINE
     Dosage: 100 MG, UNK
     Route: 048
     Dates: start: 20171205
  2. IMITREX [Suspect]
     Active Substance: SUMATRIPTAN SUCCINATE
     Indication: MIGRAINE
     Dosage: UNK
  3. SUMATRIPTAN (SUMATRIPTAN SUCCINATE) [Suspect]
     Active Substance: SUMATRIPTAN SUCCINATE
     Dosage: UNK
  4. SUMATRIPTAN (SUMATRIPTAN SUCCINATE) [Suspect]
     Active Substance: SUMATRIPTAN SUCCINATE
     Dosage: UNK
  5. SUMATRIPTAN (SUMATRIPTAN SUCCINATE) [Suspect]
     Active Substance: SUMATRIPTAN SUCCINATE
     Dosage: UNK

REACTIONS (19)
  - Asthenia [Not Recovered/Not Resolved]
  - Hypoaesthesia [Not Recovered/Not Resolved]
  - Dyspnoea [Unknown]
  - Hypotension [Not Recovered/Not Resolved]
  - Somnolence [Not Recovered/Not Resolved]
  - Poor peripheral circulation [Not Recovered/Not Resolved]
  - Photophobia [Not Recovered/Not Resolved]
  - Limb discomfort [Not Recovered/Not Resolved]
  - Adverse event [Unknown]
  - Peripheral coldness [Not Recovered/Not Resolved]
  - Dizziness [Not Recovered/Not Resolved]
  - Chest discomfort [Unknown]
  - Panic attack [Recovered/Resolved]
  - Vision blurred [Not Recovered/Not Resolved]
  - Headache [Not Recovered/Not Resolved]
  - Chest pain [Not Recovered/Not Resolved]
  - Migraine with aura [Unknown]
  - Hyperacusis [Not Recovered/Not Resolved]
  - Malaise [Not Recovered/Not Resolved]

NARRATIVE: CASE EVENT DATE: 20171205
